FAERS Safety Report 9882496 (Version 1)
Quarter: 2014Q1

REPORT INFORMATION
  Report Type: Spontaneous
  Country: FR (occurrence: FR)
  Receive Date: 20140207
  Receipt Date: 20140207
  Transmission Date: 20141002
  Serious: Yes (Hospitalization)
  Sender: FDA-Public Use
  Company Number: FR-BRISTOL-MYERS SQUIBB COMPANY-20131348

PATIENT
  Age: 67 Year
  Sex: Female

DRUGS (8)
  1. IPILIMUMAB [Suspect]
     Indication: MALIGNANT MELANOMA
     Dosage: 1 DF=5 MG/ML
     Dates: start: 20131128, end: 20131220
  2. CRESTOR [Concomitant]
  3. COAPROVEL [Concomitant]
     Dosage: 1 DF=150 / 12.5 UNIT NOS
  4. DIOSMIN [Concomitant]
  5. BETASERC [Concomitant]
     Dosage: 1 DF= 24 UNIT NOS
  6. DOLIPRANE [Concomitant]
  7. GINKGO [Concomitant]
     Dosage: 1 DF= 1 TAB
  8. PIASCLEDINE [Concomitant]

REACTIONS (2)
  - Hepatitis [Unknown]
  - Urinary tract infection [Unknown]
